FAERS Safety Report 5074500-8 (Version None)
Quarter: 2006Q3

REPORT INFORMATION
  Report Type: 
  Country: None (occurrence: None)
  Receive Date: 20060803
  Receipt Date: 20060724
  Transmission Date: 20061208
  Serious: Yes (Hospitalization)
  Sender: FDA-Public Use
  Company Number: 2006BI009153

PATIENT
  Age: 47 Year
  Sex: Male

DRUGS (5)
  1. AVONEX [Suspect]
     Indication: MULTIPLE SCLEROSIS
     Dosage: 30 UG; QW
     Dates: start: 19990401
  2. STEROIDS (NOS) [Concomitant]
  3. BLOOD PRESSURE MEDICATION [Concomitant]
  4. PROVIGIL [Concomitant]
  5. WELLBUTRIN [Concomitant]

REACTIONS (2)
  - TREATMENT NONCOMPLIANCE [None]
  - VISION BLURRED [None]
